FAERS Safety Report 5206385-0 (Version None)
Quarter: 2007Q1

REPORT INFORMATION
  Report Type: 
  Country: None (occurrence: None)
  Receive Date: 20070111
  Receipt Date: 20061228
  Transmission Date: 20070707
  Serious: Yes (Hospitalization)
  Sender: FDA-Public Use
  Company Number: JP-PFIZER INC-2006149382

PATIENT
  Sex: Male
  Weight: 66 kg

DRUGS (13)
  1. IRINOTECAN HYDROCHLORIDE SOLUTION, STERILE [Suspect]
     Indication: COLORECTAL CANCER RECURRENT
     Dosage: DAILY DOSE:280MG
     Route: 042
     Dates: start: 20051108, end: 20051122
  2. IRINOTECAN HYDROCHLORIDE SOLUTION, STERILE [Suspect]
     Dosage: DAILY DOSE:200MG
     Route: 042
     Dates: start: 20051206, end: 20060314
  3. IRINOTECAN HYDROCHLORIDE SOLUTION, STERILE [Suspect]
     Dosage: DAILY DOSE:160MG
     Route: 042
     Dates: start: 20060411, end: 20060829
  4. FLUOROURACIL [Suspect]
     Indication: COLORECTAL CANCER RECURRENT
     Dosage: DAILY DOSE:625MG
     Route: 042
     Dates: start: 20051108, end: 20051122
  5. FLUOROURACIL [Suspect]
     Dosage: DAILY DOSE:500MG
     Route: 042
     Dates: start: 20051206, end: 20060829
  6. FLUOROURACIL [Suspect]
     Dosage: DAILY DOSE:400MG-FREQ:EVERY TWO WEEKS, DAY1,2,3
     Route: 042
     Dates: start: 20051108, end: 20051124
  7. FLUOROURACIL [Suspect]
     Dosage: DAILY DOSE:2750MG-FREQ:EVERY TWO WEEKS, DAY1,2,3
     Route: 042
     Dates: start: 20051206, end: 20060831
  8. LEUCOVORIN CALCIUM [Suspect]
     Indication: COLORECTAL CANCER RECURRENT
     Dosage: DAILY DOSE:325MG
     Route: 042
     Dates: start: 20051108, end: 20051122
  9. LEUCOVORIN CALCIUM [Suspect]
     Dosage: DAILY DOSE:225MG
     Route: 042
     Dates: start: 20051105, end: 20060829
  10. FAMOTIDINE [Concomitant]
  11. GASMOTIN [Concomitant]
     Indication: GASTRITIS
     Route: 048
  12. MAGNESIUM OXIDE [Concomitant]
     Route: 048
     Dates: start: 20051108, end: 20060901
  13. JUSO [Concomitant]
     Route: 048
     Dates: start: 20051108, end: 20060901

REACTIONS (1)
  - INTERSTITIAL LUNG DISEASE [None]
